FAERS Safety Report 14927950 (Version 1)
Quarter: 2018Q2

REPORT INFORMATION
  Report Type: Spontaneous
  Country: US (occurrence: US)
  Receive Date: 20180523
  Receipt Date: 20180523
  Transmission Date: 20180711
  Serious: No
  Sender: FDA-Public Use
  Company Number: US-009507513-1805USA004702

PATIENT
  Age: 72 Year
  Sex: Female

DRUGS (3)
  1. BELSOMRA [Suspect]
     Active Substance: SUVOREXANT
     Indication: INSOMNIA
     Dosage: 10 MG, 30 MINUTES BEFORE GOING TO BED
     Route: 048
     Dates: start: 20180509
  2. MELATONIN [Concomitant]
     Active Substance: MELATONIN
  3. XANAX [Concomitant]
     Active Substance: ALPRAZOLAM

REACTIONS (2)
  - Drug effect incomplete [Unknown]
  - Middle insomnia [Unknown]

NARRATIVE: CASE EVENT DATE: 20180510
